FAERS Safety Report 25956318 (Version 1)
Quarter: 2025Q4

REPORT INFORMATION
  Report Type: Spontaneous
  Country: US (occurrence: None)
  Receive Date: 20251023
  Receipt Date: 20251023
  Transmission Date: 20260118
  Serious: Yes (Hospitalization)
  Sender: FDA-CTU
  Company Number: None

PATIENT
  Sex: Female

DRUGS (1)
  1. OZEMPIC [Suspect]
     Active Substance: SEMAGLUTIDE
     Indication: Type 2 diabetes mellitus
     Dosage: FREQ: INJECT 2 MG UNDER THE SKIN (SUBCUTANEOUS INJECTION) EVERY 7 DAYS?
     Route: 058
     Dates: start: 20230915

REACTIONS (2)
  - Hip arthroplasty [None]
  - Intentional dose omission [None]
